FAERS Safety Report 18651905 (Version 1)
Quarter: 2020Q4

REPORT INFORMATION
  Report Type: Spontaneous
  Country: US (occurrence: US)
  Receive Date: 20201223
  Receipt Date: 20201223
  Transmission Date: 20210114
  Serious: Yes (Other)
  Sender: FDA-Public Use
  Company Number: US-SA-2020SA363746

PATIENT

DRUGS (1)
  1. ZANTAC [Suspect]
     Active Substance: RANITIDINE HYDROCHLORIDE
     Indication: HYPERCHLORHYDRIA
     Dosage: 300 MG, QD
     Dates: start: 200901, end: 201612

REACTIONS (2)
  - Prostate cancer stage III [Unknown]
  - Bladder cancer stage III [Unknown]

NARRATIVE: CASE EVENT DATE: 20160101
